FAERS Safety Report 24922714 (Version 1)
Quarter: 2025Q1

REPORT INFORMATION
  Report Type: Spontaneous
  Country: CN (occurrence: CN)
  Receive Date: 20250204
  Receipt Date: 20250204
  Transmission Date: 20250409
  Serious: Yes (Hospitalization)
  Sender: ELI LILLY AND COMPANY
  Company Number: CN-Merck Healthcare KGaA-2025004646

PATIENT
  Age: 72 Year
  Sex: Female

DRUGS (6)
  1. ERBITUX [Suspect]
     Active Substance: CETUXIMAB
     Indication: Squamous cell carcinoma of the tongue
     Route: 041
     Dates: start: 20241121, end: 20241121
  2. ERBITUX [Suspect]
     Active Substance: CETUXIMAB
     Route: 041
     Dates: start: 20241121, end: 20241121
  3. CARBOPLATIN [Suspect]
     Active Substance: CARBOPLATIN
     Indication: Squamous cell carcinoma of the tongue
     Dosage: 350 MG, DAILY
     Route: 041
     Dates: start: 20241122, end: 20241122
  4. DEXTROSE [Concomitant]
     Active Substance: DEXTROSE MONOHYDRATE
     Indication: Medication dilution
     Dosage: 500 ML, DAILY (5 PERCENT )
     Route: 041
     Dates: start: 20241122, end: 20241122
  5. SODIUM CHLORIDE [Concomitant]
     Active Substance: SODIUM CHLORIDE
     Indication: Medication dilution
     Dosage: 100 ML, DAILY
     Route: 041
     Dates: start: 20241121, end: 20241122
  6. SODIUM CHLORIDE [Concomitant]
     Active Substance: SODIUM CHLORIDE
     Dosage: 500 ML, DAILY
     Route: 041
     Dates: start: 20241121, end: 20241122

REACTIONS (1)
  - Myelosuppression [Recovering/Resolving]

NARRATIVE: CASE EVENT DATE: 20241213
